FAERS Safety Report 8346818-4 (Version None)
Quarter: 2012Q2

REPORT INFORMATION
  Report Type: 
  Country: None (occurrence: None)
  Receive Date: 20120509
  Receipt Date: 20100721
  Transmission Date: 20120825
  Serious: Yes (Hospitalization)
  Sender: FDA-Public Use
  Company Number: US-TEVA-2010003886

PATIENT
  Sex: Male
  Weight: 54.026 kg

DRUGS (3)
  1. TREANDA [Suspect]
     Indication: CHRONIC LYMPHOCYTIC LEUKAEMIA
     Route: 042
     Dates: start: 20090826, end: 20090826
  2. CIPROFLOXACIN HCL [Suspect]
     Route: 042
  3. RITUXAN [Concomitant]
     Indication: CHRONIC LYMPHOCYTIC LEUKAEMIA
     Route: 042
     Dates: start: 20090801

REACTIONS (5)
  - SKIN BURNING SENSATION [None]
  - BONE MARROW FAILURE [None]
  - ASTHENIA [None]
  - DYSPNOEA [None]
  - PYREXIA [None]
